FAERS Safety Report 14316487 (Version 1)
Quarter: 2017Q4

REPORT INFORMATION
  Report Type: Report from Study
  Country: CA (occurrence: US)
  Receive Date: 20171222
  Receipt Date: 20171222
  Transmission Date: 20180321
  Serious: Yes (Other)
  Sender: FDA-Public Use
  Company Number: US-TORRENT-00005593

PATIENT
  Age: 36 Year
  Sex: Female

DRUGS (1)
  1. MINOCYCLINE [Suspect]
     Active Substance: MINOCYCLINE\MINOCYCLINE HYDROCHLORIDE
     Indication: PRODUCT USED FOR UNKNOWN INDICATION
     Dosage: DURATION OF DRUG ADMINISTRATION : 1.5 YEARS

REACTIONS (3)
  - Polyarteritis nodosa [Unknown]
  - Mononeuropathy multiplex [Recovered/Resolved]
  - Hepatitis [Unknown]
